FAERS Safety Report 25211132 (Version 2)
Quarter: 2025Q2

REPORT INFORMATION
  Report Type: Report from Study
  Country: CA (occurrence: CA)
  Receive Date: 20250417
  Receipt Date: 20250423
  Transmission Date: 20250716
  Serious: Yes (Hospitalization, Other)
  Sender: SAMSUNG BIOEPIS
  Company Number: CA-SAMSUNG BIOEPIS-SB-2025-13091

PATIENT
  Age: 83 Year
  Sex: Male

DRUGS (1)
  1. ETANERCEPT [Suspect]
     Active Substance: ETANERCEPT
     Indication: Psoriatic arthropathy
     Route: 058
     Dates: start: 20230808

REACTIONS (3)
  - Varicose vein [Unknown]
  - Gastrointestinal haemorrhage [Unknown]
  - Intestinal varices [Unknown]

NARRATIVE: CASE EVENT DATE: 20250101
